FAERS Safety Report 9850282 (Version 1)
Quarter: 2014Q1

REPORT INFORMATION
  Report Type: Spontaneous
  Country: JP (occurrence: JP)
  Receive Date: 20140128
  Receipt Date: 20140128
  Transmission Date: 20141002
  Serious: Yes (Other)
  Sender: FDA-Public Use
  Company Number: JP-GLAXOSMITHKLINE-B0962066A

PATIENT
  Age: 3 Decade
  Sex: Female

DRUGS (2)
  1. ZOVIRAX [Suspect]
     Indication: HERPES ZOSTER
     Route: 042
  2. VALTREX [Suspect]
     Indication: HERPES ZOSTER
     Route: 048

REACTIONS (1)
  - Renal disorder [Recovered/Resolved]
